FAERS Safety Report 4922591-4 (Version None)
Quarter: 2006Q1

REPORT INFORMATION
  Report Type: 
  Country: None (occurrence: None)
  Receive Date: 20060224
  Receipt Date: 20060211
  Transmission Date: 20060701
  Serious: Yes (Disabling, Other)
  Sender: FDA-Public Use
  Company Number: GB-GLAXOSMITHKLINE-B0410967A

PATIENT
  Age: 48 Year
  Sex: Male

DRUGS (7)
  1. ZYBAN [Suspect]
     Dosage: 150MG PER DAY
     Route: 048
     Dates: start: 20060106, end: 20060128
  2. PERINDOPRIL [Concomitant]
     Dosage: 4MG PER DAY
     Route: 048
     Dates: start: 20030811
  3. ATENOLOL [Concomitant]
     Dosage: 50MG PER DAY
     Route: 048
     Dates: start: 20030811
  4. BENDROFLUMETHIAZIDE [Concomitant]
     Dosage: 2.5MG PER DAY
     Route: 048
     Dates: start: 20030811
  5. ASPIRIN [Concomitant]
     Dosage: 75MG PER DAY
     Route: 048
     Dates: start: 20030811
  6. DITHRANOL [Concomitant]
     Route: 061
     Dates: start: 20041018
  7. ALOE VERA [Concomitant]
     Route: 048

REACTIONS (2)
  - DERMATITIS EXFOLIATIVE [None]
  - PSORIASIS [None]
